FAERS Safety Report 9015710 (Version 1)
Quarter: 2013Q1

REPORT INFORMATION
  Report Type: Spontaneous
  Country: ES (occurrence: None)
  Receive Date: 20130102
  Receipt Date: 20130102
  Transmission Date: 20140127
  Serious: Yes (Hospitalization, Other)
  Sender: FDA-Public Use
  Company Number: 2012P1067893

PATIENT
  Age: 32 Year
  Sex: Female

DRUGS (2)
  1. ISONIAZIDE [Suspect]
     Indication: ANTIBIOTIC PROPHYLAXIS
  2. PYRIDOSTIGMINE BROMIDE [Concomitant]

REACTIONS (4)
  - Urticaria [None]
  - Pyrexia [None]
  - Leukocytosis [None]
  - Red blood cell sedimentation rate increased [None]
